FAERS Safety Report 21104904 (Version 3)
Quarter: 2023Q4

REPORT INFORMATION
  Report Type: Other
  Country: US (occurrence: None)
  Receive Date: 20220720
  Receipt Date: 20231025
  Transmission Date: 20240110
  Serious: Yes (Hospitalization, Other)
  Sender: FDA-Public Use
  Company Number: US-ROCHE-3131975

PATIENT
  Age: 59 Year
  Sex: Female
  Weight: 60.382 kg

DRUGS (14)
  1. XOLAIR [Suspect]
     Active Substance: OMALIZUMAB
     Indication: Asthma
     Dosage: 2 SHOTS 150MG TOTAL ;ONGOING: NO
     Route: 058
     Dates: end: 201910
  2. XOLAIR [Suspect]
     Active Substance: OMALIZUMAB
  3. XOLAIR [Suspect]
     Active Substance: OMALIZUMAB
     Dosage: AT DOCTOR^S OFFICE AND IT IS INJECTED INTO HER ARM
     Route: 058
     Dates: start: 2014
  4. XOLAIR [Suspect]
     Active Substance: OMALIZUMAB
  5. BACTRIM [Suspect]
     Active Substance: SULFAMETHOXAZOLE\TRIMETHOPRIM
     Indication: Product used for unknown indication
     Route: 065
     Dates: start: 2019
  6. KLONOPIN [Concomitant]
     Active Substance: CLONAZEPAM
     Indication: Anxiety
     Route: 048
  7. DALIRESP [Concomitant]
     Active Substance: ROFLUMILAST
  8. FLUTICASONE [Concomitant]
     Active Substance: FLUTICASONE
  9. ALBUTEROL\IPRATROPIUM [Concomitant]
     Active Substance: ALBUTEROL\IPRATROPIUM
  10. SINGULAIR [Concomitant]
     Active Substance: MONTELUKAST SODIUM
  11. PROAIR HFA [Concomitant]
     Active Substance: ALBUTEROL SULFATE
  12. PROLIA [Concomitant]
     Active Substance: DENOSUMAB
  13. REMERON [Concomitant]
     Active Substance: MIRTAZAPINE
  14. TRELEGY ELLIPTA [Concomitant]
     Active Substance: FLUTICASONE FUROATE\UMECLIDINIUM BROMIDE\VILANTEROL TRIFENATATE

REACTIONS (13)
  - Chronic obstructive pulmonary disease [Recovered/Resolved]
  - Spinal fracture [Recovered/Resolved]
  - Anaphylactic reaction [Unknown]
  - Weight increased [Not Recovered/Not Resolved]
  - Body height decreased [Not Recovered/Not Resolved]
  - Cystitis [Recovered/Resolved]
  - Urticaria [Recovered/Resolved]
  - Blood cholesterol decreased [Recovered/Resolved]
  - Blood cholesterol increased [Not Recovered/Not Resolved]
  - Anxiety [Not Recovered/Not Resolved]
  - Asthma [Recovered/Resolved]
  - Chest pain [Recovered/Resolved]
  - Brain fog [Recovering/Resolving]

NARRATIVE: CASE EVENT DATE: 20200101
